FAERS Safety Report 11613324 (Version 1)
Quarter: 2015Q4

REPORT INFORMATION
  Report Type: Spontaneous
  Country: US (occurrence: US)
  Receive Date: 20151008
  Receipt Date: 20151008
  Transmission Date: 20160304
  Serious: No
  Sender: FDA-Public Use
  Company Number: US-JNJFOC-20150909973

PATIENT
  Sex: Male
  Weight: 63.5 kg

DRUGS (3)
  1. ZANTAC [Concomitant]
     Active Substance: RANITIDINE HYDROCHLORIDE
     Indication: GASTRIC DISORDER
     Route: 065
  2. BACTRIM [Concomitant]
     Active Substance: SULFAMETHOXAZOLE\TRIMETHOPRIM
     Indication: CYSTIC FIBROSIS
     Route: 065
  3. PANCREASE MT [Suspect]
     Active Substance: PANCRELIPASE
     Indication: CYSTIC FIBROSIS
     Dosage: WITH MEALS AND SNACKS
     Route: 048

REACTIONS (2)
  - Adverse event [Unknown]
  - Abdominal pain upper [Not Recovered/Not Resolved]
